FAERS Safety Report 21396079 (Version 2)
Quarter: 2022Q4

REPORT INFORMATION
  Report Type: Spontaneous
  Country: IN (occurrence: IN)
  Receive Date: 20220930
  Receipt Date: 20221007
  Transmission Date: 20230113
  Serious: Yes (Hospitalization, Other)
  Sender: FDA-Public Use
  Company Number: IN-MLMSERVICE-20220922-3806308-1

PATIENT
  Age: 56 Year
  Sex: Male

DRUGS (9)
  1. OXALIPLATIN [Suspect]
     Active Substance: OXALIPLATIN
     Indication: Metastases to liver
     Dosage: ON DAY 15 OF THE THIRD CYCLE (QCY)
  2. OXALIPLATIN [Suspect]
     Active Substance: OXALIPLATIN
     Indication: Rectal adenocarcinoma
  3. OXALIPLATIN [Suspect]
     Active Substance: OXALIPLATIN
     Indication: Metastases to lung
  4. FLUOROURACIL [Suspect]
     Active Substance: FLUOROURACIL
     Indication: Rectal adenocarcinoma
     Dosage: ON DAY 15 OF THE THIRD CYCLE (QCY)
     Route: 042
  5. FLUOROURACIL [Suspect]
     Active Substance: FLUOROURACIL
     Indication: Metastases to lung
  6. FLUOROURACIL [Suspect]
     Active Substance: FLUOROURACIL
     Indication: Metastases to liver
  7. LEUCOVORIN [Suspect]
     Active Substance: LEUCOVORIN
     Indication: Rectal adenocarcinoma
     Dosage: ON DAY 15 OF THE THIRD CYCLE (QCY)
  8. LEUCOVORIN [Suspect]
     Active Substance: LEUCOVORIN
     Indication: Metastases to liver
  9. LEUCOVORIN [Suspect]
     Active Substance: LEUCOVORIN
     Indication: Metastases to lung

REACTIONS (4)
  - Toxic leukoencephalopathy [Recovered/Resolved]
  - Facial paralysis [Recovered/Resolved]
  - Depressed level of consciousness [Recovered/Resolved]
  - Dysarthria [Recovered/Resolved]
